FAERS Safety Report 4987854-5 (Version None)
Quarter: 2006Q2

REPORT INFORMATION
  Report Type: 
  Country: None (occurrence: None)
  Receive Date: 20060424
  Receipt Date: 20060407
  Transmission Date: 20061013
  Serious: Yes (Other)
  Sender: FDA-Public Use
  Company Number: DE200604001318

PATIENT
  Sex: Male
  Weight: 78 kg

DRUGS (4)
  1. CYMBALTA [Suspect]
     Dosage: 210 MG, ORAL
     Route: 048
  2. AMPHETAMINE SULFATE [Concomitant]
  3. IBUPROFEN [Concomitant]
  4. ALCOHOL      (ETHANOL) [Concomitant]

REACTIONS (5)
  - INTENTIONAL OVERDOSE [None]
  - LOSS OF CONSCIOUSNESS [None]
  - SUICIDE ATTEMPT [None]
  - TACHYCARDIA [None]
  - VENTRICULAR EXTRASYSTOLES [None]
